FAERS Safety Report 7358308-6 (Version None)
Quarter: 2011Q1

REPORT INFORMATION
  Report Type: 
  Country: None (occurrence: None)
  Receive Date: 20110314
  Receipt Date: 20110314
  Transmission Date: 20110831
  Serious: Yes (Other)
  Sender: FDA-Public Use
  Company Number: None

PATIENT
  Age: 67 Year
  Sex: Male
  Weight: 90.7194 kg

DRUGS (1)
  1. PRADAXA [Suspect]
     Indication: ATRIAL FIBRILLATION
     Dosage: 1 PILL TWICE A DAY PO
     Route: 048
     Dates: start: 20110224, end: 20110306

REACTIONS (2)
  - HAEMATOCHEZIA [None]
  - DYSPEPSIA [None]
